FAERS Safety Report 5612490-7 (Version None)
Quarter: 2008Q1

REPORT INFORMATION
  Report Type: 
  Country: None (occurrence: None)
  Receive Date: 20080204
  Receipt Date: 20080131
  Transmission Date: 20080703
  Serious: Yes (Life-Threatening, Hospitalization)
  Sender: FDA-Public Use
  Company Number: JP-ASTRAZENECA-2008AP00279

PATIENT
  Age: 65 Year
  Sex: Female
  Weight: 65 kg

DRUGS (7)
  1. CRESTOR [Suspect]
     Indication: HYPERCHOLESTEROLAEMIA
     Route: 048
     Dates: start: 20060720, end: 20060727
  2. OLMESARTAN MEDOXOMIL [Suspect]
     Indication: HYPERTENSION
     Route: 048
     Dates: start: 20060720, end: 20060728
  3. ACTOS [Suspect]
     Indication: DIABETES MELLITUS
     Dosage: FREQUENCY UNKNOWN
     Route: 048
  4. DAONIL [Concomitant]
     Indication: DIABETES MELLITUS
     Route: 048
  5. MELBIN [Concomitant]
     Indication: DIABETES MELLITUS
     Dosage: FREQUENCY UNKNOWN
     Route: 048
  6. BASEN [Concomitant]
     Indication: DIABETES MELLITUS
     Route: 048
  7. GLYSENNID [Concomitant]
     Route: 048

REACTIONS (2)
  - CARDIAC FAILURE CONGESTIVE [None]
  - DRUG INTERACTION [None]
